FAERS Safety Report 9797528 (Version 1)
Quarter: 2014Q1

REPORT INFORMATION
  Report Type: Spontaneous
  Country: IN (occurrence: IN)
  Receive Date: 20140106
  Receipt Date: 20140106
  Transmission Date: 20141002
  Serious: Yes (Other)
  Sender: FDA-Public Use
  Company Number: PHHY2013IN151418

PATIENT
  Age: 75 Year
  Sex: Male

DRUGS (1)
  1. BUPROPION [Suspect]
     Indication: MAJOR DEPRESSION
     Dosage: 75 MG, PER DAY

REACTIONS (1)
  - Hyponatraemia [Recovered/Resolved]
